FAERS Safety Report 4899781-2 (Version None)
Quarter: 2006Q1

REPORT INFORMATION
  Report Type: 
  Country: None (occurrence: None)
  Receive Date: 20060113
  Receipt Date: 20051011
  Transmission Date: 20060701
  Serious: No
  Sender: FDA-Public Use
  Company Number: 2005SP003445

PATIENT
  Age: 72 Year
  Sex: Male
  Weight: 80.7403 kg

DRUGS (6)
  1. LUNESTA [Suspect]
     Indication: INITIAL INSOMNIA
     Dosage: 3 MG;HS;ORAL
     Route: 048
     Dates: start: 20050901
  2. METOPROLOL [Concomitant]
  3. ATORVASTATIN CALCIUM [Concomitant]
  4. ZETIA [Concomitant]
  5. COZAAR [Concomitant]
  6. SALICYLIC ACID [Concomitant]

REACTIONS (2)
  - DRUG INEFFECTIVE [None]
  - INSOMNIA [None]
